FAERS Safety Report 13538575 (Version 1)
Quarter: 2017Q2

REPORT INFORMATION
  Report Type: Report from Study
  Country: None (occurrence: BR)
  Receive Date: 20170512
  Receipt Date: 20170512
  Transmission Date: 20170830
  Serious: Yes (Death, Hospitalization, Other)
  Sender: FDA-Public Use
  Company Number: BR-ABBVIE-17K-020-1970137-00

PATIENT
  Sex: Female
  Weight: 94 kg

DRUGS (1)
  1. HUMIRA [Suspect]
     Active Substance: ADALIMUMAB
     Indication: RHEUMATOID ARTHRITIS
     Route: 058
     Dates: start: 20070601, end: 20170222

REACTIONS (8)
  - Acute kidney injury [Fatal]
  - Hypophagia [Unknown]
  - Septic shock [Fatal]
  - Infection [Unknown]
  - Abdominal pain upper [Unknown]
  - Anaemia [Unknown]
  - Neoplasm [Unknown]
  - Liver disorder [Fatal]
